FAERS Safety Report 6562166-7 (Version None)
Quarter: 2010Q1

REPORT INFORMATION
  Report Type: 
  Country: None (occurrence: None)
  Receive Date: 20100130
  Receipt Date: 20091105
  Transmission Date: 20100710
  Serious: No
  Sender: FDA-Public Use
  Company Number: US-ABBOTT-09P-163-0606984-00

PATIENT
  Sex: Female
  Weight: 58.112 kg

DRUGS (10)
  1. HUMIRA [Suspect]
     Indication: JUVENILE ARTHRITIS
     Route: 058
     Dates: start: 20080404
  2. DICLOFENAC SODIUM [Concomitant]
     Indication: PAIN
  3. DICLOFENAC SODIUM [Concomitant]
     Indication: INFLAMMATION
  4. RANITIDINE [Concomitant]
     Indication: DRUG USE FOR UNKNOWN INDICATION
     Route: 048
  5. FOLIC ACID [Concomitant]
     Indication: DRUG USE FOR UNKNOWN INDICATION
     Route: 048
  6. TREXALL [Concomitant]
     Indication: DRUG USE FOR UNKNOWN INDICATION
     Dosage: 25MG/WEEK (15MG TAB AND 10MG TAB)
     Route: 048
  7. FEXOFENADINE [Concomitant]
     Indication: SEASONAL ALLERGY
  8. TYLENOL-500 [Concomitant]
     Indication: PAIN
  9. ACNE CREAM [Concomitant]
     Indication: ACNE
     Route: 061
  10. SOLU-MEDROL [Concomitant]
     Indication: DRUG USE FOR UNKNOWN INDICATION
     Route: 042
     Dates: start: 20090501, end: 20090801

REACTIONS (1)
  - HAIR GROWTH ABNORMAL [None]
